FAERS Safety Report 19212734 (Version 1)
Quarter: 2021Q2

REPORT INFORMATION
  Report Type: Spontaneous
  Country: US (occurrence: US)
  Receive Date: 20210504
  Receipt Date: 20210504
  Transmission Date: 20210717
  Serious: No
  Sender: FDA-Public Use
  Company Number: US-ASTRAZENECA-2021A313910

PATIENT
  Sex: Male
  Weight: 66.7 kg

DRUGS (1)
  1. SYMBICORT [Suspect]
     Active Substance: BUDESONIDE\FORMOTEROL FUMARATE DIHYDRATE
     Indication: ASTHMA
     Dosage: SYMBICORT 160/4.5, 2 PUFFS BID
     Route: 055
     Dates: start: 202011, end: 202012

REACTIONS (4)
  - Cough [Not Recovered/Not Resolved]
  - Wrong technique in device usage process [Unknown]
  - Drug delivery system issue [Unknown]
  - Product use issue [Unknown]
